FAERS Safety Report 9183922 (Version 1)
Quarter: 2013Q1

REPORT INFORMATION
  Report Type: Spontaneous
  Country: US (occurrence: US)
  Receive Date: 20130322
  Receipt Date: 20130322
  Transmission Date: 20140127
  Serious: Yes (Hospitalization)
  Sender: FDA-Public Use
  Company Number: US-BRISTOL-MYERS SQUIBB COMPANY-16663411

PATIENT
  Age: 54 Year
  Sex: Male

DRUGS (3)
  1. ERBITUX [Suspect]
     Indication: HEAD AND NECK CANCER
     Dosage: 2 ND:250MG/M2:07MAY2012
     Route: 042
     Dates: start: 20120430
  2. TAXOTERE [Suspect]
     Dosage: 137 MG?21MAY2012
     Route: 042
     Dates: start: 20120430
  3. CARBOPLATIN [Concomitant]
     Dosage: 1DF=AUC6

REACTIONS (6)
  - Diarrhoea [Unknown]
  - Fatigue [Unknown]
  - Skin exfoliation [Unknown]
  - Pruritus [Not Recovered/Not Resolved]
  - Erythema [Not Recovered/Not Resolved]
  - Swelling [Not Recovered/Not Resolved]
